FAERS Safety Report 10551275 (Version 1)
Quarter: 2014Q4

REPORT INFORMATION
  Report Type: Spontaneous
  Country: US (occurrence: None)
  Receive Date: 20141028
  Receipt Date: 20141028
  Transmission Date: 20150529
  Serious: Yes (Other)
  Sender: FDA-Public Use
  Company Number: None

PATIENT
  Age: 52 Year
  Sex: Female
  Weight: 65.77 kg

DRUGS (1)
  1. LAMOTRIGINE. [Suspect]
     Active Substance: LAMOTRIGINE
     Indication: BIPOLAR DISORDER
     Dosage: 200MG ONCE DAILY BY MOUTH
     Route: 048
     Dates: start: 20090806, end: 20100816

REACTIONS (3)
  - Product substitution issue [None]
  - Therapeutic response changed [None]
  - Depressed mood [None]

NARRATIVE: CASE EVENT DATE: 20100816
